FAERS Safety Report 4461658-4 (Version None)
Quarter: 2004Q3

REPORT INFORMATION
  Report Type: 
  Country: None (occurrence: None)
  Receive Date: 20040927
  Receipt Date: 20040927
  Transmission Date: 20050211
  Serious: No
  Sender: FDA-Public Use
  Company Number: None

PATIENT
  Age: 36 Year
  Sex: Female
  Weight: 55.7924 kg

DRUGS (1)
  1. ORTHO EVRA [Suspect]
     Indication: CONTRACEPTION
     Dosage: 1 PATCH CONTINUOUSLY
     Dates: start: 20040102, end: 20040502

REACTIONS (2)
  - OLIGOMENORRHOEA [None]
  - UTERINE LEIOMYOMA [None]
